FAERS Safety Report 15294655 (Version 1)
Quarter: 2018Q3

REPORT INFORMATION
  Report Type: Spontaneous
  Country: US (occurrence: US)
  Receive Date: 20180807
  Receipt Date: 20180807
  Transmission Date: 20181010
  Serious: Yes (Disabling)
  Sender: FDA-Public Use
  Company Number: None

PATIENT
  Age: 46 Year
  Sex: Female
  Weight: 76.5 kg

DRUGS (12)
  1. TROKENDI XR [Concomitant]
     Active Substance: TOPIRAMATE
  2. CLONIDINE. [Concomitant]
     Active Substance: CLONIDINE
  3. VALIUM [Concomitant]
     Active Substance: DIAZEPAM
  4. CYMBALTA [Concomitant]
     Active Substance: DULOXETINE HYDROCHLORIDE
  5. SUDAFED [Concomitant]
     Active Substance: PSEUDOEPHEDRINE HYDROCHLORIDE
  6. ZANTAC [Concomitant]
     Active Substance: RANITIDINE HYDROCHLORIDE
  7. LAMOTRIGINE. [Concomitant]
     Active Substance: LAMOTRIGINE
  8. ALLEGRA [Concomitant]
     Active Substance: FEXOFENADINE HYDROCHLORIDE
  9. NASONEX [Suspect]
     Active Substance: MOMETASONE FUROATE
     Indication: SEASONAL ALLERGY
     Dosage: QUANTITY:2 SPRAY(S);OTHER ROUTE:NASAL SPRAY?
     Dates: start: 20091001, end: 20150925
  10. SINGLAIR [Concomitant]
  11. IMITREX [Concomitant]
     Active Substance: SUMATRIPTAN SUCCINATE
  12. CODEINE W/TYLENOL #3 [Concomitant]

REACTIONS (8)
  - Headache [None]
  - Suicidal ideation [None]
  - Migraine [None]
  - Photophobia [None]
  - Nausea [None]
  - Cerebral disorder [None]
  - Drug ineffective [None]
  - Bedridden [None]

NARRATIVE: CASE EVENT DATE: 20091101
